FAERS Safety Report 8137533-0 (Version None)
Quarter: 2012Q1

REPORT INFORMATION
  Report Type: 
  Country: None (occurrence: None)
  Receive Date: 20120215
  Receipt Date: 20120210
  Transmission Date: 20120608
  Serious: Yes (Hospitalization, Other)
  Sender: FDA-Public Use
  Company Number: US-BAYER-200919009NA

PATIENT
  Age: 58 Year
  Sex: Female

DRUGS (2)
  1. AVONEX [Concomitant]
  2. BETASERON [Suspect]
     Indication: MULTIPLE SCLEROSIS
     Dosage: 8 MIU, QOD
     Route: 058
     Dates: start: 20081105, end: 20090501

REACTIONS (8)
  - INJECTION SITE INFECTION [None]
  - HYPOTENSION [None]
  - DEHYDRATION [None]
  - DYSPNOEA [None]
  - FATIGUE [None]
  - PAIN IN EXTREMITY [None]
  - INJECTION SITE ULCER [None]
  - SCAB [None]
